FAERS Safety Report 9111370 (Version 2)
Quarter: 2014Q4

REPORT INFORMATION
  Report Type: Spontaneous
  Country: US (occurrence: US)
  Receive Date: 20130219
  Receipt Date: 20141205
  Transmission Date: 20150529
  Serious: No
  Sender: FDA-Public Use
  Company Number: US-BRISTOL-MYERS SQUIBB COMPANY-17222480

PATIENT
  Age: 49 Year
  Sex: Female

DRUGS (1)
  1. ORENCIA [Suspect]
     Active Substance: ABATACEPT
     Dosage: LAST INFUSION:12DEC2012
     Route: 042

REACTIONS (6)
  - Psoriasis [Unknown]
  - Hypersensitivity [Unknown]
  - Respiratory disorder [Unknown]
  - Pain [Unknown]
  - Cough [Unknown]
  - Drug dose omission [Unknown]
